FAERS Safety Report 15168493 (Version 3)
Quarter: 2018Q4

REPORT INFORMATION
  Report Type: Spontaneous
  Country: GB (occurrence: GB)
  Receive Date: 20180719
  Receipt Date: 20181024
  Transmission Date: 20190204
  Serious: Yes (Other)
  Sender: FDA-Public Use
  Company Number: GB-BEH-2018092921

PATIENT
  Age: 29 Year
  Sex: Female
  Weight: 110.5 kg

DRUGS (10)
  1. BERINERT [Suspect]
     Active Substance: HUMAN C1-ESTERASE INHIBITOR
     Dosage: 500 IU, BIW
     Route: 058
     Dates: start: 20170728, end: 20170905
  2. BERINERT [Suspect]
     Active Substance: HUMAN C1-ESTERASE INHIBITOR
     Dosage: 500 IU, BIW
     Route: 058
     Dates: start: 20171018
  3. BERINERT [Suspect]
     Active Substance: HUMAN C1-ESTERASE INHIBITOR
     Dosage: 500 IU, BIW
     Route: 058
     Dates: start: 20171103
  4. BERINERT [Suspect]
     Active Substance: HUMAN C1-ESTERASE INHIBITOR
     Dosage: 500 IU, UNK
     Route: 058
     Dates: start: 20180226, end: 20180226
  5. BERINERT [Suspect]
     Active Substance: HUMAN C1-ESTERASE INHIBITOR
     Dosage: 500 IU, BIW
     Route: 058
     Dates: start: 20171031, end: 20180502
  6. BERINERT [Suspect]
     Active Substance: HUMAN C1-ESTERASE INHIBITOR
     Indication: HEREDITARY ANGIOEDEMA
     Dosage: 500 IU, BIW
     Route: 058
     Dates: start: 20170714, end: 20180131
  7. BERINERT [Suspect]
     Active Substance: HUMAN C1-ESTERASE INHIBITOR
     Dosage: 500 IU, BIW
     Route: 058
     Dates: start: 20171011, end: 20180322
  8. BERINERT [Suspect]
     Active Substance: HUMAN C1-ESTERASE INHIBITOR
     Dosage: 500 IU, BIW
     Route: 058
     Dates: start: 20170801, end: 20180216
  9. BERINERT [Suspect]
     Active Substance: HUMAN C1-ESTERASE INHIBITOR
     Indication: PROPHYLAXIS
     Dosage: 500 IU, BIW
     Route: 058
  10. BERINERT [Suspect]
     Active Substance: HUMAN C1-ESTERASE INHIBITOR
     Dosage: 500 IU, BIW
     Route: 058
     Dates: start: 20171019

REACTIONS (6)
  - Ear infection [Recovered/Resolved]
  - Hereditary angioedema [Unknown]
  - Oropharyngeal pain [Recovered/Resolved]
  - Diabetes mellitus inadequate control [Recovering/Resolving]
  - Gestational diabetes [Recovering/Resolving]
  - Sinusitis [Recovered/Resolved]

NARRATIVE: CASE EVENT DATE: 201707
